FAERS Safety Report 7016808-2 (Version None)
Quarter: 2010Q3

REPORT INFORMATION
  Report Type: 
  Country: None (occurrence: None)
  Receive Date: 20100927
  Receipt Date: 20100916
  Transmission Date: 20110219
  Serious: Yes (Other)
  Sender: FDA-Public Use
  Company Number: PHEH2005US07182

PATIENT
  Sex: Female

DRUGS (11)
  1. AREDIA [Suspect]
     Dosage: MONTHLY
     Route: 042
     Dates: start: 19990101, end: 20010101
  2. ZOMETA [Suspect]
     Indication: BREAST CANCER METASTATIC
     Dosage: 4 MG, UNK
     Route: 042
     Dates: start: 20020101
  3. XELODA [Concomitant]
  4. PREVACID [Concomitant]
  5. ZESTRIL [Concomitant]
  6. ADRIAMYCIN PFS [Concomitant]
     Dosage: 40 MG, WEEKLY
     Route: 042
  7. ALOXI [Concomitant]
     Dosage: 0.25 MG/5 ML
  8. COUMADIN [Concomitant]
     Dosage: 2.5 MG, QD(1 TAB DAILY)
  9. DECADRON [Concomitant]
  10. FLUCONAZOLE [Concomitant]
     Dosage: 100 MG, QD
  11. OMEPRAZOLE [Concomitant]

REACTIONS (29)
  - ABSCESS DRAINAGE [None]
  - ANAEMIA [None]
  - ARTERIOSCLEROSIS CORONARY ARTERY [None]
  - BACK PAIN [None]
  - BONE DEBRIDEMENT [None]
  - BONE PAIN [None]
  - DEFORMITY [None]
  - ENDODONTIC PROCEDURE [None]
  - GAIT DISTURBANCE [None]
  - GINGIVAL PAIN [None]
  - GINGIVAL SWELLING [None]
  - INFECTION [None]
  - INTERVERTEBRAL DISC PROTRUSION [None]
  - METASTASES TO CENTRAL NERVOUS SYSTEM [None]
  - METASTASES TO LIVER [None]
  - METASTASES TO SPINE [None]
  - MUCOSAL ULCERATION [None]
  - MUSCULAR WEAKNESS [None]
  - NEOPLASM MALIGNANT [None]
  - NEUROPATHY PERIPHERAL [None]
  - ORAL DISCOMFORT [None]
  - OSTEOLYSIS [None]
  - OSTEOMYELITIS [None]
  - OSTEONECROSIS OF JAW [None]
  - PAIN [None]
  - PULMONARY HYPERTENSION [None]
  - SURGERY [None]
  - THYROID CANCER [None]
  - TOOTH EXTRACTION [None]
